FAERS Safety Report 5170297-1 (Version None)
Quarter: 2006Q4

REPORT INFORMATION
  Report Type: 
  Country: None (occurrence: None)
  Receive Date: 20061204
  Receipt Date: 20061123
  Transmission Date: 20070319
  Serious: Yes (Life-Threatening, Hospitalization)
  Sender: FDA-Public Use
  Company Number: PHFR2006GB03467

PATIENT
  Age: 60 Year
  Sex: Female

DRUGS (7)
  1. DICLOFENAC (DICLOFENAC) [Suspect]
     Dosage: 75 MG, BID, ORAL
     Route: 048
     Dates: end: 20061030
  2. GABAPENTIN [Suspect]
     Dosage: 100 MG, QD, ORAL
     Route: 048
  3. SLOW-K [Suspect]
     Dosage: 600 MG, QD, ORAL
     Route: 048
  4. BENDROFLUMETHIAZIDE (BENDROFLUMETHIAZIDE) [Concomitant]
  5. CO-CODAMOL (CODEINE PHOSPHATE, PARACETAMOL) [Concomitant]
  6. QUININE SULFATE [Concomitant]
  7. RANITIDINE [Concomitant]

REACTIONS (1)
  - GASTRIC ULCER PERFORATION [None]
